FAERS Safety Report 19198217 (Version 3)
Quarter: 2021Q2

REPORT INFORMATION
  Report Type: Other
  Country: US (occurrence: US)
  Receive Date: 20210430
  Receipt Date: 20210615
  Transmission Date: 20210717
  Serious: Yes (Other)
  Sender: FDA-Public Use
  Company Number: US-ROCHE-2710852

PATIENT
  Age: 53 Year
  Sex: Male

DRUGS (5)
  1. CIPROFLOXACIN. [Concomitant]
     Active Substance: CIPROFLOXACIN
     Dates: start: 202008
  2. IMIQUIMOD. [Concomitant]
     Active Substance: IMIQUIMOD
     Indication: BASAL CELL CARCINOMA
     Dosage: 85 %, 2 WEEKS ON, 2 WEEKS OFF FOR 2 MONTHS
     Route: 061
     Dates: start: 202103
  3. MUPIROCIN. [Concomitant]
     Active Substance: MUPIROCIN
     Indication: BASAL CELL CARCINOMA
     Route: 061
     Dates: start: 202008, end: 202009
  4. ERIVEDGE [Suspect]
     Active Substance: VISMODEGIB
     Indication: BASAL CELL CARCINOMA
     Route: 048
  5. ERIVEDGE [Suspect]
     Active Substance: VISMODEGIB
     Indication: AUTOIMMUNE DISORDER
     Route: 048
     Dates: start: 20200505, end: 202101

REACTIONS (9)
  - Decreased appetite [Recovering/Resolving]
  - Vision blurred [Unknown]
  - Hallucination [Not Recovered/Not Resolved]
  - Dizziness [Recovered/Resolved]
  - Nerve injury [Unknown]
  - Loss of consciousness [Unknown]
  - Arthropathy [Unknown]
  - Illness [Unknown]
  - Sensory loss [Unknown]

NARRATIVE: CASE EVENT DATE: 202007
